FAERS Safety Report 16006253 (Version 1)
Quarter: 2019Q1

REPORT INFORMATION
  Report Type: Spontaneous
  Country: DE (occurrence: DE)
  Receive Date: 20190226
  Receipt Date: 20190226
  Transmission Date: 20190418
  Serious: Yes (Other)
  Sender: FDA-Public Use
  Company Number: DE-JNJFOC-20190226662

PATIENT
  Age: 71 Year
  Sex: Female
  Weight: 71 kg

DRUGS (3)
  1. OLMESARTAN [Concomitant]
     Active Substance: OLMESARTAN
     Indication: ATRIAL FIBRILLATION
     Dosage: 10 MG, QD 1/2 TABLET-0-0
     Route: 065
     Dates: start: 20180105
  2. XARELTO [Suspect]
     Active Substance: RIVAROXABAN
     Indication: ATRIAL FIBRILLATION
     Dosage: 20 MG, QD, 0-1-0 PZN 08461433
     Route: 048
     Dates: start: 20170607, end: 2018
  3. XARELTO [Suspect]
     Active Substance: RIVAROXABAN
     Indication: ATRIAL FIBRILLATION
     Dosage: 20 MG, QD, 0-1-0 PZN 09724550
     Route: 048
     Dates: start: 20180621, end: 20180726

REACTIONS (15)
  - Rash [Recovering/Resolving]
  - Dyspepsia [Unknown]
  - Nausea [Unknown]
  - Flatulence [Unknown]
  - Arthralgia [Unknown]
  - Acne [Unknown]
  - Asthenia [Unknown]
  - Cardiac disorder [Unknown]
  - Skin discolouration [Unknown]
  - Scar [Unknown]
  - Pruritus [Recovering/Resolving]
  - Fatigue [Unknown]
  - Poor quality product administered [Unknown]
  - Headache [Unknown]
  - Oedema peripheral [Unknown]

NARRATIVE: CASE EVENT DATE: 20180621
